FAERS Safety Report 6644051-5 (Version None)
Quarter: 2010Q1

REPORT INFORMATION
  Report Type: 
  Country: None (occurrence: None)
  Receive Date: 20100322
  Receipt Date: 20100310
  Transmission Date: 20100710
  Serious: Yes (Hospitalization, Other)
  Sender: FDA-Public Use
  Company Number: DE-ELI_LILLY_AND_COMPANY-DE201003002662

PATIENT
  Age: 53 Year
  Sex: Male

DRUGS (2)
  1. ZYPREXA [Suspect]
     Route: 048
     Dates: end: 20091201
  2. ZYPREXA [Suspect]
     Dosage: 10 MG, UNK
     Route: 048
     Dates: start: 20100301

REACTIONS (16)
  - AGITATION [None]
  - BRONCHITIS [None]
  - CATATONIA [None]
  - COMA [None]
  - HEART RATE DECREASED [None]
  - HYPERHIDROSIS [None]
  - LEUKOCYTOSIS [None]
  - MIOSIS [None]
  - OXYGEN SATURATION DECREASED [None]
  - PERSEVERATION [None]
  - SCHIZOPHRENIA, CATATONIC TYPE [None]
  - SLEEP DISORDER [None]
  - SOMNOLENCE [None]
  - STEREOTYPY [None]
  - STUPOR [None]
  - TRISMUS [None]
